FAERS Safety Report 22047990 (Version 1)
Quarter: 2023Q1

REPORT INFORMATION
  Report Type: Spontaneous
  Country: PT (occurrence: PT)
  Receive Date: 20230301
  Receipt Date: 20230301
  Transmission Date: 20230418
  Serious: Yes (Disabling)
  Sender: FDA-Public Use
  Company Number: PT-INFARMED-T202301-933

PATIENT
  Age: 63 Year
  Sex: Female
  Weight: 66 kg

DRUGS (1)
  1. ZOLEDRONIC ACID [Suspect]
     Active Substance: ZOLEDRONIC ACID
     Indication: Osteoporosis
     Dosage: 1 INJECTION
     Route: 042
     Dates: start: 20230110

REACTIONS (3)
  - Pyrexia [Recovering/Resolving]
  - Myalgia [Recovering/Resolving]
  - Pain [Recovering/Resolving]

NARRATIVE: CASE EVENT DATE: 20230110
